FAERS Safety Report 12957882 (Version 1)
Quarter: 2016Q4

REPORT INFORMATION
  Report Type: Spontaneous
  Country: US (occurrence: US)
  Receive Date: 20161118
  Receipt Date: 20161118
  Transmission Date: 20170207
  Serious: No
  Sender: FDA-Public Use
  Company Number: US-AQUA PHARMACEUTICALS-2016AQU000263

PATIENT
  Age: 15 Year
  Sex: Female

DRUGS (2)
  1. ACTICLATE [Suspect]
     Active Substance: DOXYCYCLINE HYCLATE
     Indication: ACNE
     Dosage: UNK UNK, QD
     Route: 048
     Dates: start: 2015, end: 2015
  2. ACTICLATE [Suspect]
     Active Substance: DOXYCYCLINE HYCLATE
     Dosage: 150 MG, QD
     Route: 048
     Dates: start: 201606, end: 20160906

REACTIONS (1)
  - Clostridium difficile colitis [Not Recovered/Not Resolved]

NARRATIVE: CASE EVENT DATE: 201608
